FAERS Safety Report 6985464-1 (Version None)
Quarter: 2010Q3

REPORT INFORMATION
  Report Type: 
  Country: None (occurrence: None)
  Receive Date: 20100915
  Receipt Date: 20100913
  Transmission Date: 20110219
  Serious: Yes (Other)
  Sender: FDA-Public Use
  Company Number: A0880852A

PATIENT
  Sex: Male

DRUGS (2)
  1. LOVAZA [Suspect]
     Dosage: 4G PER DAY
     Route: 048
  2. MULTIPLE MEDICATION [Concomitant]

REACTIONS (2)
  - AGEUSIA [None]
  - ANOSMIA [None]
